FAERS Safety Report 15566284 (Version 1)
Quarter: 2018Q4

REPORT INFORMATION
  Report Type: Spontaneous
  Country: US (occurrence: US)
  Receive Date: 20181025
  Receipt Date: 20181025
  Transmission Date: 20190205
  Serious: Yes (Hospitalization)
  Sender: FDA-Public Use
  Company Number: None

PATIENT
  Age: 58 Year
  Sex: Male
  Weight: 110.9 kg

DRUGS (24)
  1. ASPIRIN. [Concomitant]
     Active Substance: ASPIRIN
  2. METFORMIN [Concomitant]
     Active Substance: METFORMIN HYDROCHLORIDE
  3. METOPROLOL. [Concomitant]
     Active Substance: METOPROLOL
  4. GABAPENTIN. [Concomitant]
     Active Substance: GABAPENTIN
  5. ACETAMINOPHEN. [Concomitant]
     Active Substance: ACETAMINOPHEN
  6. AUGMENTIN [Concomitant]
     Active Substance: AMOXICILLIN\CLAVULANATE POTASSIUM
  7. ISOSORBIDE MONONITRATE. [Concomitant]
     Active Substance: ISOSORBIDE MONONITRATE
  8. CYANOCOBALAMIN. [Concomitant]
     Active Substance: CYANOCOBALAMIN
  9. MAVYRET [Suspect]
     Active Substance: GLECAPREVIR\PIBRENTASVIR
     Indication: HEPATITIS C
     Dosage: ?          OTHER DOSE:3 TABS;?
     Route: 048
     Dates: start: 20180530, end: 20180821
  10. SYMBICORT [Concomitant]
     Active Substance: BUDESONIDE\FORMOTEROL FUMARATE DIHYDRATE
  11. NITROGLYCERIN. [Concomitant]
     Active Substance: NITROGLYCERIN
  12. TAMSULOSIN [Concomitant]
     Active Substance: TAMSULOSIN
  13. DABIGATRAN [Concomitant]
     Active Substance: DABIGATRAN
  14. INSULIN GLARGINE [Concomitant]
     Active Substance: INSULIN GLARGINE
  15. LEVALBUTEROL. [Concomitant]
     Active Substance: LEVALBUTEROL
  16. LOSARTAN. [Concomitant]
     Active Substance: LOSARTAN
  17. RANITIDINE. [Concomitant]
     Active Substance: RANITIDINE
  18. OXYMETAZOLINE [Concomitant]
     Active Substance: OXYMETAZOLINE
  19. DOXYCYCLINE. [Concomitant]
     Active Substance: DOXYCYCLINE
  20. ALBUTEROL. [Concomitant]
     Active Substance: ALBUTEROL
  21. DULOXETINE. [Concomitant]
     Active Substance: DULOXETINE
  22. PRAVASTATIN. [Concomitant]
     Active Substance: PRAVASTATIN
  23. NORTRIPTYLINE [Concomitant]
     Active Substance: NORTRIPTYLINE
  24. OXYCODONE [Concomitant]
     Active Substance: OXYCODONE

REACTIONS (3)
  - Hypertensive crisis [None]
  - Oedema peripheral [None]
  - Hyperkalaemia [None]

NARRATIVE: CASE EVENT DATE: 20180815
